FAERS Safety Report 6480558-1 (Version None)
Quarter: 2009Q4

REPORT INFORMATION
  Report Type: 
  Country: None (occurrence: None)
  Receive Date: 20091208
  Receipt Date: 20091130
  Transmission Date: 20100525
  Serious: Yes (Hospitalization)
  Sender: FDA-Public Use
  Company Number: JP-MERCK-0912USA00405

PATIENT
  Age: 71 Year
  Sex: Female

DRUGS (3)
  1. SINGULAIR [Suspect]
     Indication: ASTHMA
     Route: 048
     Dates: start: 20091124, end: 20091127
  2. CISDYNE [Suspect]
     Indication: ASTHMA
     Route: 048
     Dates: start: 20091124, end: 20091125
  3. ALVESCO [Concomitant]
     Indication: ASTHMA
     Route: 055
     Dates: start: 20091124

REACTIONS (1)
  - DRUG ERUPTION [None]
